FAERS Safety Report 9202965 (Version 2)
Quarter: 2013Q2

REPORT INFORMATION
  Report Type: Spontaneous
  Country: US (occurrence: US)
  Receive Date: 20130402
  Receipt Date: 20130502
  Transmission Date: 20140414
  Serious: Yes (Hospitalization)
  Sender: FDA-Public Use
  Company Number: US-AMGEN-USASP2013021449

PATIENT
  Sex: Female

DRUGS (6)
  1. PROLIA [Suspect]
     Indication: OSTEOPOROSIS
     Dosage: 60 UNK, Q6MO
     Route: 058
     Dates: start: 20110321, end: 20110405
  2. LISINOPRIL HYDROCHLORTHIAZID [Concomitant]
     Indication: HYPERTENSION
     Dosage: 20/12.5 QD
     Route: 048
  3. FISH OIL OMEGA 3 [Concomitant]
     Dosage: 300 UNK, QD
     Route: 048
  4. ECOTRIN [Concomitant]
     Indication: HYPERTENSION
     Dosage: 81 MG, QD
  5. MAGNESIUM [Concomitant]
     Dosage: 400 UNK, QD
  6. CALCIUM + VITAMIN D                /01483701/ [Concomitant]
     Indication: OSTEOPOROSIS
     Dosage: 1200/1000, QD
     Route: 048

REACTIONS (2)
  - Diverticulitis [Recovered/Resolved]
  - Diarrhoea [Recovered/Resolved]
